FAERS Safety Report 15744391 (Version 1)
Quarter: 2018Q4

REPORT INFORMATION
  Report Type: Spontaneous
  Country: CA (occurrence: CA)
  Receive Date: 20181220
  Receipt Date: 20181220
  Transmission Date: 20190205
  Serious: Yes (Hospitalization, Other)
  Sender: FDA-Public Use
  Company Number: CA-BAYER-2018-236760

PATIENT
  Age: 58 Year
  Sex: Male

DRUGS (3)
  1. FLUCONAZOLE. [Suspect]
     Active Substance: FLUCONAZOLE
     Indication: PROPHYLAXIS
     Dosage: 400 MG, QD (1 EVERY 1 DAY(S)
     Route: 048
  2. PIPERACILLIN SODIUM;TAZOBACTAM SODIUM [Concomitant]
     Dosage: UNK
  3. CIPRO [Suspect]
     Active Substance: CIPROFLOXACIN HYDROCHLORIDE
     Indication: PROPHYLAXIS
     Dosage: UNK
     Route: 065

REACTIONS (4)
  - Colitis [Not Recovered/Not Resolved]
  - Off label use [None]
  - Febrile neutropenia [Not Recovered/Not Resolved]
  - Appendicitis [Not Recovered/Not Resolved]
